FAERS Safety Report 17705847 (Version 11)
Quarter: 2022Q1

REPORT INFORMATION
  Report Type: Report from Study
  Country: NL (occurrence: NL)
  Receive Date: 20200424
  Receipt Date: 20220315
  Transmission Date: 20220423
  Serious: Yes (Other)
  Sender: FDA-Public Use
  Company Number: NL-ABBVIE-20K-114-3349903-00

PATIENT
  Sex: Male
  Weight: 60 kg

DRUGS (4)
  1. CARBIDOPA\LEVODOPA [Suspect]
     Active Substance: CARBIDOPA\LEVODOPA
     Indication: Parkinson^s disease
     Dosage: MD 12.0, CD  5.0, ED 2.0, 16 HRS/DAY
     Route: 050
     Dates: start: 20160510
  2. CARBIDOPA\LEVODOPA [Suspect]
     Active Substance: CARBIDOPA\LEVODOPA
     Dosage: MD 12.0, CD INCREASED WITH 0.2 TO 5.2, ED 2.0, 16 HRS/DAY
     Route: 050
     Dates: start: 202003, end: 2020
  3. CARBIDOPA\LEVODOPA [Suspect]
     Active Substance: CARBIDOPA\LEVODOPA
     Dosage: MD: 12ML, CD: 5.4ML/H, ED: 2.0ML
     Route: 050
  4. LEVODOPA [Concomitant]
     Active Substance: LEVODOPA
     Indication: Product used for unknown indication
     Route: 048

REACTIONS (47)
  - Prostate cancer [Not Recovered/Not Resolved]
  - Musculoskeletal stiffness [Not Recovered/Not Resolved]
  - Cognitive disorder [Not Recovered/Not Resolved]
  - Abnormal faeces [Not Recovered/Not Resolved]
  - Medical device site dryness [Unknown]
  - Nocturia [Recovering/Resolving]
  - Memory impairment [Recovered/Resolved]
  - Patient-device incompatibility [Unknown]
  - Mobility decreased [Not Recovered/Not Resolved]
  - Skin laceration [Not Recovered/Not Resolved]
  - Obsessive-compulsive disorder [Not Recovered/Not Resolved]
  - Administration site scab [Recovered/Resolved]
  - Administration site hyperaesthesia [Recovered/Resolved]
  - Balance disorder [Not Recovered/Not Resolved]
  - Mood altered [Recovering/Resolving]
  - Amnesia [Not Recovered/Not Resolved]
  - Abnormal faeces [Not Recovered/Not Resolved]
  - Incorrect dose administered [Unknown]
  - Fall [Not Recovered/Not Resolved]
  - Fall [Recovered/Resolved]
  - Urinary incontinence [Recovering/Resolving]
  - Parkinson^s disease [Not Recovered/Not Resolved]
  - Unevaluable event [Not Recovered/Not Resolved]
  - Stoma site erythema [Unknown]
  - On and off phenomenon [Recovering/Resolving]
  - Dyspnoea [Not Recovered/Not Resolved]
  - Daydreaming [Recovering/Resolving]
  - Feeling abnormal [Not Recovered/Not Resolved]
  - Fine motor skill dysfunction [Not Recovered/Not Resolved]
  - Therapeutic product effect incomplete [Recovered/Resolved]
  - Diplopia [Not Recovered/Not Resolved]
  - Reduced facial expression [Not Recovered/Not Resolved]
  - Flatulence [Not Recovered/Not Resolved]
  - Abnormal dreams [Not Recovered/Not Resolved]
  - General physical health deterioration [Unknown]
  - Medical device site dryness [Unknown]
  - Auditory disorder [Unknown]
  - Abnormal faeces [Recovered/Resolved]
  - Pollakiuria [Unknown]
  - Memory impairment [Not Recovered/Not Resolved]
  - Posture abnormal [Not Recovered/Not Resolved]
  - Hallucination [Not Recovered/Not Resolved]
  - Fatigue [Not Recovered/Not Resolved]
  - Tremor [Not Recovered/Not Resolved]
  - Anxiety [Not Recovered/Not Resolved]
  - Muscle rigidity [Unknown]
  - Bradykinesia [Unknown]

NARRATIVE: CASE EVENT DATE: 20200101
